FAERS Safety Report 5128564-3 (Version None)
Quarter: 2006Q4

REPORT INFORMATION
  Report Type: 
  Country: None (occurrence: None)
  Receive Date: 20061017
  Receipt Date: 20061013
  Transmission Date: 20070319
  Serious: Yes (Hospitalization)
  Sender: FDA-Public Use
  Company Number: US-GLAXOSMITHKLINE-A0623599A

PATIENT
  Sex: Male
  Weight: 3.4 kg

DRUGS (4)
  1. LAMICTAL [Suspect]
     Indication: BIPOLAR DISORDER
  2. SEROQUEL [Concomitant]
     Dosage: 500MG PER DAY
  3. EFFEXOR [Concomitant]
     Dosage: 75MG PER DAY
  4. TRAZODONE HCL [Concomitant]
     Dosage: 200MG PER DAY

REACTIONS (2)
  - DRUG EXPOSURE DURING PREGNANCY [None]
  - MENINGITIS [None]
